FAERS Safety Report 12964534 (Version 4)
Quarter: 2021Q3

REPORT INFORMATION
  Report Type: Report from Study
  Country: DE (occurrence: DE)
  Receive Date: 20161122
  Receipt Date: 20210810
  Transmission Date: 20211014
  Serious: Yes (Other)
  Sender: FDA-Public Use
  Company Number: DE-BIOGEN-2016BI00319735

PATIENT
  Age: 0 Day
  Sex: Male
  Weight: 2.44 kg

DRUGS (3)
  1. PLEGRIDY [Suspect]
     Active Substance: PEGINTERFERON BETA-1A
     Indication: MATERNAL EXPOSURE TIMING UNSPECIFIED
     Route: 064
     Dates: start: 20141121, end: 201601
  2. VITAMIN ? K [Concomitant]
     Indication: PROPHYLAXIS
     Route: 065
  3. PLEGRIDY [Suspect]
     Active Substance: PEGINTERFERON BETA-1A
     Route: 064
     Dates: end: 201602

REACTIONS (3)
  - Foetal exposure timing unspecified [Recovered/Resolved]
  - Low birth weight baby [Unknown]
  - Umbilical cord around neck [Recovered/Resolved]

NARRATIVE: CASE EVENT DATE: 20160927
